FAERS Safety Report 4932142-6 (Version None)
Quarter: 2006Q1

REPORT INFORMATION
  Report Type: 
  Country: None (occurrence: None)
  Receive Date: 20060303
  Receipt Date: 20060208
  Transmission Date: 20060701
  Serious: Yes (Other)
  Sender: FDA-Public Use
  Company Number: FR-ROCHE-435729

PATIENT
  Age: 75 Year
  Sex: Female

DRUGS (1)
  1. ROCEPHIN [Suspect]
     Indication: ERYSIPELAS
     Route: 030
     Dates: start: 20051215

REACTIONS (3)
  - COAGULATION FACTOR V LEVEL DECREASED [None]
  - COAGULOPATHY [None]
  - PROTHROMBIN TIME RATIO DECREASED [None]
